FAERS Safety Report 14215287 (Version 1)
Quarter: 2017Q4

REPORT INFORMATION
  Report Type: Spontaneous
  Country: US (occurrence: US)
  Receive Date: 20171122
  Receipt Date: 20171122
  Transmission Date: 20180321
  Serious: Yes (Other)
  Sender: FDA-Public Use
  Company Number: US-TEVA-2017-US-826221

PATIENT
  Age: 31 Year
  Sex: Male

DRUGS (1)
  1. CEFALEXIN [Suspect]
     Active Substance: CEPHALEXIN
     Indication: MYOSITIS
     Dates: start: 20171010

REACTIONS (4)
  - Hypoacusis [Unknown]
  - Cerebral palsy [Not Recovered/Not Resolved]
  - Eye irritation [Unknown]
  - Mouth swelling [Unknown]

NARRATIVE: CASE EVENT DATE: 201710
